FAERS Safety Report 5697987-6 (Version None)
Quarter: 2008Q2

REPORT INFORMATION
  Report Type: 
  Country: None (occurrence: None)
  Receive Date: 20080404
  Receipt Date: 20080404
  Transmission Date: 20081010
  Serious: Yes (Other)
  Sender: FDA-Public Use
  Company Number: None

PATIENT

DRUGS (2)
  1. DEPAKOTE [Suspect]
  2. DEPAKOTE ER [Suspect]

REACTIONS (1)
  - OFF LABEL USE [None]
